FAERS Safety Report 8901855 (Version 1)
Quarter: 2012Q4

REPORT INFORMATION
  Report Type: Spontaneous
  Country: US (occurrence: None)
  Receive Date: 20121109
  Receipt Date: 20121109
  Transmission Date: 20130627
  Serious: Yes (Disabling, Other)
  Sender: FDA-Public Use
  Company Number: None

PATIENT
  Age: 25 Year
  Sex: Male
  Weight: 92.99 kg

DRUGS (1)
  1. CIPROFLOXACIN [Suspect]
     Route: 042
     Dates: start: 20120221, end: 20120222

REACTIONS (16)
  - Pruritus [None]
  - Urticaria [None]
  - Infusion related reaction [None]
  - Dyspnoea [None]
  - Chest pain [None]
  - Tendon disorder [None]
  - Anxiety [None]
  - Insomnia [None]
  - Fatigue [None]
  - Heart rate increased [None]
  - Tendon pain [None]
  - Muscle twitching [None]
  - Tinnitus [None]
  - Paraesthesia [None]
  - Vitreous floaters [None]
  - Tinnitus [None]
